FAERS Safety Report 19236499 (Version 1)
Quarter: 2021Q2

REPORT INFORMATION
  Report Type: Other
  Country: CA (occurrence: CA)
  Receive Date: 20210510
  Receipt Date: 20210510
  Transmission Date: 20210717
  Serious: Yes (Other)
  Sender: FDA-Public Use
  Company Number: CA-ROCHE-2822084

PATIENT
  Age: 57 Year
  Sex: Female

DRUGS (7)
  1. XOLAIR [Suspect]
     Active Substance: OMALIZUMAB
     Indication: CHRONIC SPONTANEOUS URTICARIA
     Route: 058
     Dates: start: 20180913
  2. TELMISARTAN. [Concomitant]
     Active Substance: TELMISARTAN
     Indication: BLOOD PRESSURE INCREASED
     Dosage: 1 DF, QD
     Route: 048
  3. SYNTHROID [Concomitant]
     Active Substance: LEVOTHYROXINE SODIUM
     Indication: PRODUCT USED FOR UNKNOWN INDICATION
     Dosage: 1 DF, QD
     Route: 065
  4. XOLAIR [Suspect]
     Active Substance: OMALIZUMAB
     Route: 058
  5. REACTINE (CANADA) [Concomitant]
     Active Substance: CETIRIZINE HYDROCHLORIDE
     Indication: URTICARIA
     Dosage: 1 DF, QD
     Route: 065
     Dates: start: 2010
  6. XOLAIR [Suspect]
     Active Substance: OMALIZUMAB
     Route: 058
     Dates: start: 20180913
  7. BENADRYL [Concomitant]
     Active Substance: DIPHENHYDRAMINE HYDROCHLORIDE
     Indication: URTICARIA
     Dosage: 1 DF, QD
     Route: 065

REACTIONS (18)
  - Chest pain [Unknown]
  - Influenza [Unknown]
  - Malaise [Unknown]
  - Headache [Unknown]
  - Myocardial infarction [Unknown]
  - Illness [Unknown]
  - Oropharyngeal discomfort [Unknown]
  - Urticaria [Unknown]
  - Head discomfort [Recovered/Resolved]
  - Cough [Not Recovered/Not Resolved]
  - Pruritus [Unknown]
  - Palpitations [Unknown]
  - Vaginal infection [Unknown]
  - Hypertension [Unknown]
  - Viral infection [Not Recovered/Not Resolved]
  - Atrial fibrillation [Unknown]
  - Injection site pain [Unknown]
  - Heart rate decreased [Unknown]

NARRATIVE: CASE EVENT DATE: 20180913
